FAERS Safety Report 12987851 (Version 2)
Quarter: 2018Q4

REPORT INFORMATION
  Report Type: Spontaneous
  Country: DK (occurrence: DK)
  Receive Date: 20161130
  Receipt Date: 20181105
  Transmission Date: 20190204
  Serious: Yes (Hospitalization, Disabling)
  Sender: FDA-Public Use
  Company Number: PHHY2016DK162263

PATIENT
  Age: 28 Year
  Sex: Female

DRUGS (14)
  1. NOVORAPID [Concomitant]
     Active Substance: INSULIN ASPART
     Indication: DIABETES MELLITUS
     Dosage: STYRKE: 100 E/ML. DOSIS: 6 E MORGEN OG MIDDAG, 8 E AFTEN
     Route: 058
  2. MULTI VITAMIN [Concomitant]
     Active Substance: VITAMINS
     Indication: MULTI-VITAMIN DEFICIENCY
     Dosage: 2 DF (?G/L), QD
     Route: 048
     Dates: start: 20120724
  3. LANTUS [Concomitant]
     Active Substance: INSULIN GLARGINE
     Indication: DIABETES MELLITUS
     Dosage: STYRKE: 100 E/ML. DOSIS: 20 E MORGEN OG 8 E AFTEN
     Route: 058
  4. ACLASTA [Suspect]
     Active Substance: ZOLEDRONIC ACID
     Indication: METASTASES TO BONE
  5. CARDIOSTAD [Concomitant]
     Active Substance: LISINOPRIL
     Indication: HYPERTENSION
     Dosage: 20 MG, QD
     Route: 048
     Dates: start: 20140604
  6. OMEPRAZOLE. [Concomitant]
     Active Substance: OMEPRAZOLE
     Indication: GASTRIC PH DECREASED
     Dosage: 20 MG, QD
     Route: 048
  7. PREDNISOLONE. [Concomitant]
     Active Substance: PREDNISOLONE
     Indication: ADRENOCORTICAL STEROID THERAPY
     Dosage: 37.5 MG, QD
     Route: 048
  8. SULFAMETHOXAZOLE AND TRIMETHOPRIM [Concomitant]
     Active Substance: SULFAMETHOXAZOLE\TRIMETHOPRIM
     Indication: PRODUCT USED FOR UNKNOWN INDICATION
     Dosage: 1 ?G/L, QD
     Route: 048
     Dates: start: 20120227
  9. URSOFALK [Concomitant]
     Active Substance: URSODIOL
     Indication: PRODUCT USED FOR UNKNOWN INDICATION
     Dosage: 100 MG, UNK
     Route: 048
  10. PROGRAF [Concomitant]
     Active Substance: TACROLIMUS\TACROLIMUS ANHYDROUS
     Indication: IMMUNOSUPPRESSION
     Dosage: 1 MG, QD
     Route: 048
     Dates: start: 20140604
  11. KREON 10 000 [Concomitant]
     Indication: ENZYME SUPPLEMENTATION
     Dosage: 3 OT, UNK
     Route: 048
     Dates: start: 20140604
  12. SIMVASTATIN. [Concomitant]
     Active Substance: SIMVASTATIN
     Indication: HYPERCHOLESTEROLAEMIA
     Dosage: 40 MG, QD
     Route: 048
     Dates: start: 20140604
  13. ACLASTA [Suspect]
     Active Substance: ZOLEDRONIC ACID
     Indication: OSTEOPOROSIS
     Dosage: 2.5 MG, Q12MO (STYRKE: 5 MG/100 ML. )
     Route: 065
     Dates: start: 20131021
  14. ACTILAX [Concomitant]
     Active Substance: LACTULOSE
     Indication: CONSTIPATION
     Dosage: STYRKE: 7,5 MG/ML. DOSIS: 10 DR?BER MORGEN OG AFTEN
     Route: 048
     Dates: start: 20150102

REACTIONS (7)
  - Walking aid user [Not Recovered/Not Resolved]
  - Muscle atrophy [Not Recovered/Not Resolved]
  - Arthralgia [Not Recovered/Not Resolved]
  - Bone pain [Not Recovered/Not Resolved]
  - Movement disorder [Not Recovered/Not Resolved]
  - Gait disturbance [Not Recovered/Not Resolved]
  - Atypical femur fracture [Recovered/Resolved with Sequelae]

NARRATIVE: CASE EVENT DATE: 201507
